FAERS Safety Report 9607418 (Version 2)
Quarter: 2013Q4

REPORT INFORMATION
  Report Type: Spontaneous
  Country: US (occurrence: None)
  Receive Date: 20131004
  Receipt Date: 20131108
  Transmission Date: 20140711
  Serious: Yes (Other)
  Sender: FDA-Public Use
  Company Number: ACO_38773_2013

PATIENT
  Age: 43 Year
  Sex: Female
  Weight: 49.9 kg

DRUGS (10)
  1. AMPYRA [Suspect]
     Indication: PRODUCT USED FOR UNKNOWN INDICATION
     Dosage: 10 MG, Q 12
     Dates: start: 20130611, end: 201306
  2. AVONEX [Concomitant]
  3. CYMBALTA [Concomitant]
  4. FIORICET (BUTALBITAL, CAFFEINE, PARACETAMOL) [Concomitant]
  5. LYRICA (PREGABALIN) [Concomitant]
  6. METFORMIN ER (METFORMIN HYDROCHLORIDE) [Concomitant]
  7. OMEPRAZOLE (OMEPRAZOLE) [Concomitant]
  8. PREMARIN (ESTROGENS CONJUGATED) [Concomitant]
  9. RAMIPRIL (RAMIPRIL) [Concomitant]
  10. SIMVASTATIN (SIMVASTATIN) [Concomitant]

REACTIONS (3)
  - Palpitations [None]
  - Chest pain [None]
  - Anxiety [None]
